FAERS Safety Report 14569078 (Version 2)
Quarter: 2018Q2

REPORT INFORMATION
  Report Type: Spontaneous
  Country: US (occurrence: US)
  Receive Date: 20180223
  Receipt Date: 20180402
  Transmission Date: 20180711
  Serious: Yes (Hospitalization, Other)
  Sender: FDA-Public Use
  Company Number: US-GLAXOSMITHKLINE-US2018030355

PATIENT
  Age: 53 Year
  Sex: Female

DRUGS (4)
  1. VENTOLIN HFA [Suspect]
     Active Substance: ALBUTEROL SULFATE
     Dosage: 1 PUFF(S), PRN
  2. VENTOLIN HFA [Suspect]
     Active Substance: ALBUTEROL SULFATE
     Indication: ASTHMA
     Dosage: 1 PUFF(S), PRN
  3. SYMBICORT [Concomitant]
     Active Substance: BUDESONIDE\FORMOTEROL FUMARATE DIHYDRATE
  4. SPIRIVA [Concomitant]
     Active Substance: TIOTROPIUM BROMIDE MONOHYDRATE

REACTIONS (27)
  - Pneumonia [Recovered/Resolved]
  - Chest pain [Recovered/Resolved]
  - Influenza [Recovered/Resolved]
  - Carbon dioxide increased [Unknown]
  - Delirium [Unknown]
  - Life support [Recovered/Resolved]
  - Chronic obstructive pulmonary disease [Unknown]
  - Product quality issue [Unknown]
  - Oxygen saturation decreased [Recovered/Resolved]
  - Mechanical ventilation [Recovered/Resolved]
  - Living in residential institution [Recovered/Resolved]
  - Dyspnoea [Recovered/Resolved]
  - Chest X-ray abnormal [Unknown]
  - Gastrointestinal tube insertion [Recovered/Resolved]
  - Tracheostomy [Unknown]
  - Oxygen therapy [Unknown]
  - Rehabilitation therapy [Unknown]
  - Incoherent [Recovered/Resolved]
  - Asthenia [Recovered/Resolved]
  - Lung disorder [Unknown]
  - Cyanosis [Unknown]
  - Impaired work ability [Unknown]
  - Endotracheal intubation [Recovered/Resolved]
  - Terminal state [Unknown]
  - Emphysema [Unknown]
  - Product use issue [Unknown]
  - Memory impairment [Recovered/Resolved]

NARRATIVE: CASE EVENT DATE: 2014
